FAERS Safety Report 8348580-8 (Version None)
Quarter: 2012Q2

REPORT INFORMATION
  Report Type: 
  Country: None (occurrence: None)
  Receive Date: 20120510
  Receipt Date: 20120503
  Transmission Date: 20120825
  Serious: Yes (Death, Other)
  Sender: FDA-Public Use
  Company Number: FR-BRISTOL-MYERS SQUIBB COMPANY-16571465

PATIENT
  Age: 85 Year
  Sex: Female

DRUGS (4)
  1. PREDNISOLONE [Suspect]
     Route: 048
     Dates: end: 20120221
  2. COUMADIN [Suspect]
     Dates: start: 20111101, end: 20120220
  3. PLAVIX [Suspect]
     Dosage: FILM COATED TABS
     Route: 048
     Dates: start: 20111101, end: 20120220
  4. ASPIRIN [Suspect]
     Dosage: 1 SACHET DAILY
     Route: 048
     Dates: start: 20111101, end: 20120220

REACTIONS (4)
  - GASTROINTESTINAL HAEMORRHAGE [None]
  - INTERNATIONAL NORMALISED RATIO INCREASED [None]
  - GASTRIC ULCER [None]
  - MELAENA [None]
